FAERS Safety Report 7580818-7 (Version None)
Quarter: 2011Q2

REPORT INFORMATION
  Report Type: 
  Country: None (occurrence: None)
  Receive Date: 20110629
  Receipt Date: 20110620
  Transmission Date: 20111010
  Serious: Yes (Hospitalization)
  Sender: FDA-Public Use
  Company Number: JP-ASTRAZENECA-2011SE37945

PATIENT
  Age: 78 Year
  Sex: Female
  Weight: 63 kg

DRUGS (25)
  1. DIOVANE [Concomitant]
     Indication: HYPERTENSION
     Dates: start: 20051216
  2. NIFLAN [Concomitant]
     Indication: CATARACT
  3. LANDEL [Concomitant]
     Indication: HYPERTENSION
     Dates: start: 20060302
  4. NELBIS [Concomitant]
     Indication: DIABETES MELLITUS
  5. ATELEC [Concomitant]
  6. RHUBARB [Concomitant]
  7. ALPRAZOLAM [Concomitant]
     Indication: AUTONOMIC NEUROPATHY
  8. KETOPROFEN [Concomitant]
     Indication: PAIN
  9. HEMOCURON [Concomitant]
     Indication: HAEMORRHOIDS
  10. ARIMIDEX [Suspect]
     Indication: BREAST CANCER
     Route: 048
     Dates: start: 20050704, end: 20081207
  11. MAGNESIUM OXIDE [Concomitant]
  12. NORVASC [Concomitant]
     Indication: HYPERTENSION
     Dates: start: 20050819
  13. TENAXIL [Concomitant]
     Indication: HYPERTENSION
     Dates: start: 20051012
  14. BISOPROLOL FUMARATE [Concomitant]
     Indication: HYPERTENSION
     Dates: start: 20051116
  15. RHYTHMY [Concomitant]
     Dates: start: 20050713
  16. CEROCRAL [Concomitant]
  17. SELBEX [Concomitant]
     Dates: start: 20051026
  18. POSTERISAN [Concomitant]
     Indication: HAEMORRHOIDS
  19. METFORMIN HCL [Concomitant]
  20. LOXONIN [Concomitant]
     Indication: PAIN
     Dates: start: 20051109
  21. YODEL S [Concomitant]
     Indication: CONSTIPATION
     Dates: start: 20070427
  22. BUFFERIN [Concomitant]
     Indication: CEREBRAL INFARCTION
     Dates: start: 19940101
  23. SILECE [Concomitant]
     Indication: AUTONOMIC NEUROPATHY
  24. AREDIA [Concomitant]
  25. EXEMESTANE [Suspect]
     Indication: BREAST CANCER
     Route: 048
     Dates: start: 20081209, end: 20101013

REACTIONS (1)
  - NEPHROGENIC ANAEMIA [None]
